FAERS Safety Report 19313702 (Version 1)
Quarter: 2021Q2

REPORT INFORMATION
  Report Type: Report from Study
  Country: EG (occurrence: EG)
  Receive Date: 20210527
  Receipt Date: 20210527
  Transmission Date: 20210717
  Serious: Yes (Death, Hospitalization)
  Sender: FDA-Public Use
  Company Number: NVSC2021EG117587

PATIENT
  Age: 48 Year
  Sex: Female

DRUGS (1)
  1. ENTRESTO [Suspect]
     Active Substance: SACUBITRIL\VALSARTAN
     Indication: CARDIAC FAILURE
     Dosage: 1 DF, BID
     Route: 048
     Dates: start: 20200421

REACTIONS (6)
  - Electrolyte imbalance [Fatal]
  - COVID-19 [Fatal]
  - Diarrhoea [Fatal]
  - Hypotension [Fatal]
  - Renal failure [Fatal]
  - Intracardiac thrombus [Fatal]

NARRATIVE: CASE EVENT DATE: 20210419
